FAERS Safety Report 24124700 (Version 1)
Quarter: 2024Q3

REPORT INFORMATION
  Report Type: Spontaneous
  Country: US (occurrence: US)
  Receive Date: 20240723
  Receipt Date: 20240723
  Transmission Date: 20241017
  Serious: No
  Sender: AMNEAL
  Company Number: US-AMNEAL PHARMACEUTICALS-2024-AMRX-01101

PATIENT
  Sex: Female
  Weight: 102.04 kg

DRUGS (5)
  1. OXYCODONE HYDROCHLORIDE [Suspect]
     Active Substance: OXYCODONE HYDROCHLORIDE
     Indication: Pain
     Dosage: 10 MILLIGRAM
     Route: 048
     Dates: start: 202311
  2. BACLOFEN [Concomitant]
     Active Substance: BACLOFEN
     Indication: Muscle spasms
     Dosage: 10 MILLIGRAM, BID
     Route: 048
     Dates: start: 202209
  3. BACLOFEN [Concomitant]
     Active Substance: BACLOFEN
     Indication: Pain
  4. LIOTHYRONINE [LIOTHYRONINE SODIUM] [Concomitant]
     Indication: Hypothyroidism
     Dosage: 5 MICROGRAM, 4 /DAY
     Route: 048
     Dates: start: 202101
  5. PHENTERMINE [Concomitant]
     Active Substance: PHENTERMINE
     Indication: Weight decreased
     Dosage: 37.5 MILLIGRAM, QD
     Route: 048
     Dates: start: 202306

REACTIONS (10)
  - Starvation [Not Recovered/Not Resolved]
  - Bradykinesia [Not Recovered/Not Resolved]
  - Behaviour disorder [Not Recovered/Not Resolved]
  - Flatulence [Not Recovered/Not Resolved]
  - Fatigue [Not Recovered/Not Resolved]
  - Asthenia [Not Recovered/Not Resolved]
  - Headache [Not Recovered/Not Resolved]
  - Nausea [Not Recovered/Not Resolved]
  - Diarrhoea [Not Recovered/Not Resolved]
  - Drug ineffective [Unknown]
